FAERS Safety Report 10101396 (Version 1)
Quarter: 2014Q2

REPORT INFORMATION
  Report Type: Spontaneous
  Country: US (occurrence: US)
  Receive Date: 20140424
  Receipt Date: 20140424
  Transmission Date: 20141212
  Serious: No
  Sender: FDA-Public Use
  Company Number: US-009507513-1403USA012972

PATIENT
  Age: 21 Year
  Sex: 0

DRUGS (3)
  1. NEXPLANON [Suspect]
     Dosage: 68 MG, 1 ROD
     Route: 059
     Dates: start: 201103, end: 20140312
  2. NEXPLANON [Suspect]
     Dosage: 68 MG, 1 ROD
     Route: 059
     Dates: start: 20140312
  3. NEXPLANON [Suspect]
     Dosage: 68 MG, 1ROD
     Route: 059
     Dates: start: 200803, end: 201103

REACTIONS (2)
  - Device breakage [Unknown]
  - No adverse event [Unknown]
